FAERS Safety Report 8824859 (Version 3)
Quarter: 2013Q3

REPORT INFORMATION
  Report Type: Spontaneous
  Country: US (occurrence: US)
  Receive Date: 20121004
  Receipt Date: 20130716
  Transmission Date: 20140515
  Serious: Yes (Hospitalization, Other)
  Sender: FDA-Public Use
  Company Number: US-009507513-1210USA001627

PATIENT
  Sex: Male

DRUGS (2)
  1. PEGINTRON [Suspect]
     Indication: HEPATITIS C
     Dosage: UNK
     Dates: start: 20120804, end: 20121124
  2. REBETOL [Suspect]
     Indication: HEPATITIS C
     Dosage: UNK
     Route: 048
     Dates: start: 20120804, end: 20121124

REACTIONS (17)
  - Upper respiratory tract infection [Unknown]
  - Dysphonia [Unknown]
  - Immune system disorder [Unknown]
  - Influenza like illness [Unknown]
  - Increased upper airway secretion [Unknown]
  - Cough [Unknown]
  - Asthenia [Unknown]
  - Dizziness [Unknown]
  - Haemoglobin decreased [Unknown]
  - Asthenia [Unknown]
  - Influenza like illness [Unknown]
  - Increased appetite [Unknown]
  - Dyspnoea [Unknown]
  - Upper respiratory tract infection [Unknown]
  - Malaise [Unknown]
  - Weight decreased [Unknown]
  - Dyspnoea [Unknown]
